FAERS Safety Report 11013768 (Version 2)
Quarter: 2015Q2

REPORT INFORMATION
  Report Type: Spontaneous
  Country: US (occurrence: US)
  Receive Date: 20150412
  Receipt Date: 20150526
  Transmission Date: 20150821
  Serious: No
  Sender: FDA-Public Use
  Company Number: US-JNJFOC-20140301298

PATIENT
  Sex: Male

DRUGS (1)
  1. PANCREASE MT [Suspect]
     Active Substance: PANCRELIPASE
     Indication: PRODUCT USED FOR UNKNOWN INDICATION
     Route: 048
     Dates: start: 2014

REACTIONS (5)
  - Hepatic pain [Unknown]
  - Peripheral swelling [Unknown]
  - Rash erythematous [Unknown]
  - Arthralgia [Unknown]
  - Abdominal pain upper [Unknown]
